FAERS Safety Report 8332564-X (Version None)
Quarter: 2012Q2

REPORT INFORMATION
  Report Type: 
  Country: None (occurrence: None)
  Receive Date: 20120503
  Receipt Date: 20120426
  Transmission Date: 20120825
  Serious: Yes (Other)
  Sender: FDA-Public Use
  Company Number: BR-BAYER-2012-041785

PATIENT
  Age: 48 Year
  Sex: Female

DRUGS (4)
  1. DICLOFENAC [Concomitant]
     Indication: CHILLS
     Dosage: 1 DF, QID
     Route: 048
     Dates: start: 20120426
  2. FLUOXETINE [Concomitant]
     Indication: DEPRESSION
     Dosage: 1 UNK, UNK
  3. DICLOFENAC [Concomitant]
     Indication: BONE PAIN
  4. BETASERON [Suspect]
     Indication: MULTIPLE SCLEROSIS
     Dosage: UNK
     Route: 058
     Dates: start: 20120423

REACTIONS (5)
  - MALAISE [None]
  - BONE PAIN [None]
  - ASTHENIA [None]
  - FEELING HOT [None]
  - CHILLS [None]
